FAERS Safety Report 25281538 (Version 1)
Quarter: 2025Q2

REPORT INFORMATION
  Report Type: Spontaneous
  Country: AU (occurrence: AU)
  Receive Date: 20250508
  Receipt Date: 20250508
  Transmission Date: 20250717
  Serious: Yes (Other)
  Sender: RANBAXY
  Company Number: AU-SUN PHARMACEUTICAL INDUSTRIES LTD-2025R1-506473

PATIENT
  Age: 44 Year
  Sex: Male

DRUGS (7)
  1. CIPROFLOXACIN [Suspect]
     Active Substance: CIPROFLOXACIN
     Indication: Product used for unknown indication
     Route: 048
     Dates: start: 202001, end: 2020
  2. FLUCONAZOLE [Suspect]
     Active Substance: FLUCONAZOLE
     Indication: Product used for unknown indication
     Route: 042
     Dates: start: 202001
  3. MEROPENEM [Suspect]
     Active Substance: MEROPENEM
     Indication: Product used for unknown indication
     Route: 042
     Dates: start: 202001
  4. CEFEPIME [Suspect]
     Active Substance: CEFEPIME HYDROCHLORIDE
     Indication: Product used for unknown indication
     Route: 042
     Dates: start: 202001
  5. CEFTRIAXONE [Suspect]
     Active Substance: CEFTRIAXONE
     Indication: Product used for unknown indication
     Route: 065
     Dates: start: 202001
  6. HALOPERIDOL [Suspect]
     Active Substance: HALOPERIDOL
     Indication: Product used for unknown indication
     Route: 048
  7. METRONIDAZOLE [Suspect]
     Active Substance: METRONIDAZOLE
     Indication: Product used for unknown indication
     Route: 065
     Dates: start: 202001

REACTIONS (37)
  - Abdominal wall abscess [Unknown]
  - Abdominal pain [Unknown]
  - Thrombocytopenia [Unknown]
  - Leukopenia [Unknown]
  - Haemolysis [Unknown]
  - Gallbladder fistula [Unknown]
  - Fistula of small intestine [Unknown]
  - Electrocardiogram QT prolonged [Unknown]
  - Colonic fistula [Unknown]
  - Anaemia [Unknown]
  - Atrial flutter [Unknown]
  - Blood albumin decreased [Unknown]
  - Blood lactate dehydrogenase increased [Unknown]
  - Blood potassium increased [Unknown]
  - C-reactive protein increased [Unknown]
  - Disease recurrence [Unknown]
  - Electrocardiogram ST-T segment abnormal [Unknown]
  - Electrocardiogram T wave abnormal [Unknown]
  - Eosinophil count increased [Unknown]
  - Gamma-glutamyltransferase increased [Unknown]
  - Haematocrit decreased [Unknown]
  - Haemoglobin decreased [Unknown]
  - Lymphocyte count decreased [Unknown]
  - Mean cell haemoglobin decreased [Unknown]
  - Neutrophilia [Unknown]
  - Oxygen saturation decreased [Unknown]
  - Platelet count decreased [Unknown]
  - Protein total decreased [Unknown]
  - Protein urine present [Unknown]
  - Pyrexia [Unknown]
  - QRS axis abnormal [Unknown]
  - Red blood cell count decreased [Unknown]
  - Red cell distribution width increased [Unknown]
  - Serum ferritin decreased [Unknown]
  - Sinus tachycardia [Unknown]
  - Thalassaemia [Unknown]
  - White blood cell count decreased [Unknown]

NARRATIVE: CASE EVENT DATE: 20200101
